FAERS Safety Report 10501586 (Version 1)
Quarter: 2014Q4

REPORT INFORMATION
  Report Type: Spontaneous
  Country: US (occurrence: None)
  Receive Date: 20141006
  Receipt Date: 20141006
  Transmission Date: 20150528
  Serious: Yes (Hospitalization)
  Sender: FDA-Public Use
  Company Number: None

PATIENT
  Age: 72 Year
  Sex: Male
  Weight: 70.31 kg

DRUGS (1)
  1. PROPOFOL. [Suspect]
     Active Substance: PROPOFOL

REACTIONS (6)
  - Post procedural complication [None]
  - Foreign body sensation in eyes [None]
  - Sneezing [None]
  - Conjunctival hyperaemia [None]
  - Vision blurred [None]
  - Eye irritation [None]

NARRATIVE: CASE EVENT DATE: 20141002
